FAERS Safety Report 8601006 (Version 2)
Quarter: 2013Q2

REPORT INFORMATION
  Report Type: Spontaneous
  Country: US (occurrence: US)
  Receive Date: 20120606
  Receipt Date: 20130418
  Transmission Date: 20140414
  Serious: No
  Sender: FDA-Public Use
  Company Number: US-ASTRAZENECA-2012SE34409

PATIENT
  Age: 53 Year
  Sex: Female

DRUGS (2)
  1. SYMBICORT PMDI [Suspect]
     Dosage: UNKNOWN, UNKNOWN
     Route: 055
  2. RHINOCORT AQUA [Suspect]
     Route: 045

REACTIONS (6)
  - Dyspnoea [Unknown]
  - Nasal congestion [Unknown]
  - Lichen planus [Unknown]
  - Rash generalised [Unknown]
  - Intentional drug misuse [Unknown]
  - Drug dose omission [Unknown]
